FAERS Safety Report 7151460-7 (Version None)
Quarter: 2010Q4

REPORT INFORMATION
  Report Type: 
  Country: None (occurrence: None)
  Receive Date: 20101126
  Receipt Date: 20101115
  Transmission Date: 20110411
  Serious: Yes (Hospitalization, Disabling, Other)
  Sender: FDA-Public Use
  Company Number: ACO_20434_2010

PATIENT
  Age: 57 Year
  Sex: Female
  Weight: 49.9 kg

DRUGS (11)
  1. AMPYRA [Suspect]
     Indication: MULTIPLE SCLEROSIS
     Dosage: 10 MG, QD, ORAL
     Route: 048
     Dates: start: 20100430, end: 20100503
  2. COPAXONE [Concomitant]
  3. BACTRIM [Concomitant]
  4. OXYBUTIN (OXYBUTYNIN HYDROCHLORIDE) [Concomitant]
  5. NEURONTIN [Concomitant]
  6. BACLOFEN [Concomitant]
  7. CELEBREX [Concomitant]
  8. NEXIUM [Concomitant]
  9. VEGISEN [Concomitant]
  10. AZT [Concomitant]
  11. STEROIDS [Concomitant]

REACTIONS (4)
  - ARTHRALGIA [None]
  - HEMIPLEGIA [None]
  - INAPPROPRIATE SCHEDULE OF DRUG ADMINISTRATION [None]
  - MULTIPLE SCLEROSIS RELAPSE [None]
